FAERS Safety Report 8127908-8 (Version None)
Quarter: 2011Q4

REPORT INFORMATION
  Report Type: 
  Country: None (occurrence: None)
  Receive Date: 20111230
  Receipt Date: 20110405
  Transmission Date: 20120403
  Serious: Yes (Other)
  Sender: FDA-Public Use
  Company Number: 274957USA

PATIENT
  Age: 4 Year
  Sex: Male

DRUGS (1)
  1. AZITHROMYCIN [Suspect]
     Indication: BRONCHITIS
     Dosage: 100MG/5ML

REACTIONS (7)
  - OEDEMA MOUTH [None]
  - ABDOMINAL PAIN UPPER [None]
  - LIP SWELLING [None]
  - PARAESTHESIA ORAL [None]
  - PRURITUS [None]
  - CHEST DISCOMFORT [None]
  - SWOLLEN TONGUE [None]
